FAERS Safety Report 8134647-6 (Version None)
Quarter: 2012Q1

REPORT INFORMATION
  Report Type: 
  Country: None (occurrence: None)
  Receive Date: 20120214
  Receipt Date: 20120203
  Transmission Date: 20120608
  Serious: Yes (Other)
  Sender: FDA-Public Use
  Company Number: JP-JNJFOC-20120204264

PATIENT
  Age: 60 Year
  Sex: Male

DRUGS (7)
  1. REMICADE [Suspect]
     Route: 042
     Dates: start: 20111215
  2. METHOTREXATE [Suspect]
     Indication: PRODUCT USED FOR UNKNOWN INDICATION
     Route: 048
  3. REMICADE [Suspect]
     Indication: RHEUMATOID ARTHRITIS
     Route: 042
     Dates: start: 20120126
  4. POLARAMINE [Concomitant]
     Indication: PROPHYLAXIS
     Route: 048
     Dates: start: 20120126, end: 20120126
  5. SOLU-CORTEF [Concomitant]
     Indication: PROPHYLAXIS
     Route: 042
     Dates: start: 20120126, end: 20120126
  6. REMICADE [Suspect]
     Route: 042
  7. HUMIRA [Concomitant]
     Route: 065

REACTIONS (6)
  - DYSPNOEA [None]
  - RASH [None]
  - OXYGEN SATURATION DECREASED [None]
  - FLUSHING [None]
  - INFUSION RELATED REACTION [None]
  - FEELING HOT [None]
